FAERS Safety Report 16167952 (Version 1)
Quarter: 2019Q2

REPORT INFORMATION
  Report Type: Spontaneous
  Country: US (occurrence: US)
  Receive Date: 20190408
  Receipt Date: 20190408
  Transmission Date: 20190711
  Serious: No
  Sender: FDA-Public Use
  Company Number: US-ACLARIS THERAPEUTICS-2019US002548

PATIENT

DRUGS (1)
  1. ESKATA [Suspect]
     Active Substance: HYDROGEN PEROXIDE
     Indication: SKIN LESION
     Dosage: UNK
     Route: 061

REACTIONS (3)
  - Ulcer [Recovered/Resolved]
  - Scar [Not Recovered/Not Resolved]
  - Application site discolouration [Unknown]
